FAERS Safety Report 14311540 (Version 1)
Quarter: 2017Q4

REPORT INFORMATION
  Report Type: Spontaneous
  Country: CZ (occurrence: CZ)
  Receive Date: 20171221
  Receipt Date: 20171221
  Transmission Date: 20180321
  Serious: Yes (Other)
  Sender: FDA-Public Use
  Company Number: CZ-CIPLA LTD.-2017CZ24756

PATIENT

DRUGS (3)
  1. CETIRIZINE [Suspect]
     Active Substance: CETIRIZINE HYDROCHLORIDE
     Indication: CHRONIC SPONTANEOUS URTICARIA
     Dosage: 20 MG, QD
     Route: 065
     Dates: start: 2016, end: 2016
  2. BISULEPIN [Concomitant]
     Active Substance: BISULEPIN
     Indication: CHRONIC SPONTANEOUS URTICARIA
     Dosage: 2 MG, QD
     Route: 065
  3. LEVONORGESTREL. [Concomitant]
     Active Substance: LEVONORGESTREL
     Indication: PRODUCT USED FOR UNKNOWN INDICATION
     Dosage: UNKNOWN DOSE
     Route: 015

REACTIONS (2)
  - Drug prescribing error [Unknown]
  - Drug ineffective [Unknown]
